FAERS Safety Report 7670120-7 (Version None)
Quarter: 2011Q3

REPORT INFORMATION
  Report Type: 
  Country: None (occurrence: None)
  Receive Date: 20110808
  Receipt Date: 20110804
  Transmission Date: 20111222
  Serious: Yes (Death, Other)
  Sender: FDA-Public Use
  Company Number: PHEH2008US10283

PATIENT
  Sex: Female
  Weight: 167.8 kg

DRUGS (42)
  1. CELEBREX [Concomitant]
  2. EVISTA [Concomitant]
  3. IBUPROFEN (ADVIL) [Concomitant]
  4. VALIUM [Concomitant]
  5. LYRICA [Concomitant]
  6. FASLODEX [Concomitant]
  7. OXYCONTIN [Concomitant]
  8. FEMARA [Concomitant]
  9. PHENAZOPYRIDINE HCL TAB [Concomitant]
  10. AREDIA [Suspect]
     Indication: OSTEOPOROSIS
     Dosage: 90 MG, QMO
     Route: 042
     Dates: start: 20040101, end: 20060101
  11. SYNTHROID [Concomitant]
  12. PREDNISONE [Concomitant]
  13. FLAGYL [Concomitant]
  14. VANCOMYCIN [Concomitant]
  15. TYLENOL-500 [Concomitant]
  16. AREDIA [Suspect]
     Indication: BONE LOSS
  17. ZOMETA [Suspect]
     Indication: OSTEOPOROSIS
     Dates: start: 20060101, end: 20070101
  18. IBUPROFEN [Concomitant]
  19. MEROPENEM [Concomitant]
  20. MECLIZINE [Concomitant]
  21. NEURONTIN [Concomitant]
  22. TAXOTERE [Concomitant]
  23. SENOKOT                                 /UNK/ [Concomitant]
  24. HEPARIN [Concomitant]
  25. FENTANYL [Concomitant]
  26. AMBIEN [Concomitant]
  27. SUDAFED 12 HOUR [Concomitant]
  28. PROTONIX [Concomitant]
  29. CIPRO [Concomitant]
  30. CALCIUM CARBONATE [Concomitant]
  31. ABRAXANE [Concomitant]
  32. DILAUDID [Concomitant]
  33. ZOMETA [Suspect]
     Indication: BONE LOSS
  34. MEDROL [Concomitant]
  35. PRILOSEC [Concomitant]
  36. LEVAQUIN [Concomitant]
  37. COLACE [Concomitant]
  38. FERROUS SULFATE TAB [Concomitant]
  39. ULTRACET [Concomitant]
  40. CLINDAMYCIN [Concomitant]
  41. FLEXERIL [Concomitant]
  42. ALLOPURINOL [Concomitant]

REACTIONS (94)
  - TOOTH ABSCESS [None]
  - CELLULITIS [None]
  - BACK PAIN [None]
  - ADRENAL MASS [None]
  - PULMONARY OEDEMA [None]
  - DENTAL CARIES [None]
  - GINGIVAL SWELLING [None]
  - THYROID CANCER [None]
  - DYSPHAGIA [None]
  - POLLAKIURIA [None]
  - THYROID MASS [None]
  - INSOMNIA [None]
  - ARTHRALGIA [None]
  - STAG HORN CALCULUS [None]
  - PANCREATIC CARCINOMA [None]
  - DYSPNOEA [None]
  - BONE DISORDER [None]
  - HEPATOSPLENOMEGALY [None]
  - METASTASES TO BONE [None]
  - RHINITIS ALLERGIC [None]
  - BLOOD GLUCOSE INCREASED [None]
  - INJURY [None]
  - TENDERNESS [None]
  - LACUNAR INFARCTION [None]
  - MUSCULOSKELETAL PAIN [None]
  - ANAEMIA [None]
  - ORAL FIBROMA [None]
  - SPLENIC CYST [None]
  - RECTAL ULCER [None]
  - NAUSEA [None]
  - DRUG HYPERSENSITIVITY [None]
  - BLOOD ALKALINE PHOSPHATASE INCREASED [None]
  - BREAST CANCER [None]
  - PAIN IN JAW [None]
  - TOOTH INFECTION [None]
  - OSTEOMYELITIS [None]
  - MUSCULOSKELETAL DISCOMFORT [None]
  - SPINAL CORD INJURY THORACIC [None]
  - LUNG NEOPLASM [None]
  - PLEURAL EFFUSION [None]
  - PULMONARY CONGESTION [None]
  - GINGIVAL BLEEDING [None]
  - OSTEORADIONECROSIS [None]
  - FISTULA [None]
  - URTICARIA [None]
  - PRURITUS [None]
  - OSTEONECROSIS OF JAW [None]
  - BONE LESION [None]
  - BRONCHITIS [None]
  - RESPIRATORY FAILURE [None]
  - PNEUMONIA [None]
  - HYPOVENTILATION [None]
  - NEUTROPENIA [None]
  - CARDIOMEGALY [None]
  - PULPITIS DENTAL [None]
  - THYROGLOBULIN INCREASED [None]
  - ELECTROCARDIOGRAM QRS COMPLEX ABNORMAL [None]
  - ELECTROCARDIOGRAM QT PROLONGED [None]
  - EXOSTOSIS [None]
  - PAIN [None]
  - OEDEMA PERIPHERAL [None]
  - LYMPHADENOPATHY [None]
  - HYPOXIA [None]
  - CARDIAC FAILURE CONGESTIVE [None]
  - EPISTAXIS [None]
  - SLEEP APNOEA SYNDROME [None]
  - TOOTH LOSS [None]
  - MIGRAINE [None]
  - HEARING IMPAIRED [None]
  - HYPOAESTHESIA [None]
  - MUSCULAR WEAKNESS [None]
  - DEATH [None]
  - ANXIETY [None]
  - ADENOCARCINOMA [None]
  - ROTATOR CUFF SYNDROME [None]
  - KYPHOSIS [None]
  - METASTASIS [None]
  - BLOOD POTASSIUM DECREASED [None]
  - RHINALGIA [None]
  - CALCULUS URETERIC [None]
  - HYDRONEPHROSIS [None]
  - LOOSE TOOTH [None]
  - EAR PAIN [None]
  - SKIN REACTION [None]
  - FATIGUE [None]
  - CLAVICLE FRACTURE [None]
  - OSTEOARTHRITIS [None]
  - RENAL CYST [None]
  - PERIODONTAL DISEASE [None]
  - SENSITIVITY OF TEETH [None]
  - PATHOLOGICAL FRACTURE [None]
  - PLASMACYTOSIS [None]
  - ABSCESS NECK [None]
  - DYSPEPSIA [None]
